FAERS Safety Report 20367522 (Version 4)
Quarter: 2024Q1

REPORT INFORMATION
  Report Type: Spontaneous
  Country: US (occurrence: US)
  Receive Date: 20220124
  Receipt Date: 20240124
  Transmission Date: 20240409
  Serious: Yes (Disabling, Other)
  Sender: FDA-Public Use
  Company Number: US-SA-SAC20220118000448

PATIENT
  Age: 58 Year
  Sex: Male

DRUGS (18)
  1. LEMTRADA [Suspect]
     Active Substance: ALEMTUZUMAB
     Indication: Primary progressive multiple sclerosis
     Dosage: UNK
     Route: 041
     Dates: start: 20150316, end: 20150320
  2. LEMTRADA [Suspect]
     Active Substance: ALEMTUZUMAB
     Indication: Multiple sclerosis
  3. LEMTRADA [Suspect]
     Active Substance: ALEMTUZUMAB
     Indication: Muscular weakness
  4. OCRELIZUMAB [Concomitant]
     Active Substance: OCRELIZUMAB
  5. VITAMIN D3 [Concomitant]
     Active Substance: CHOLECALCIFEROL
     Dosage: 2 DF, QD
     Route: 048
  6. ESCITALOPRAM OXALATE [Concomitant]
     Active Substance: ESCITALOPRAM OXALATE
     Dosage: 1 DF, QD
     Route: 048
  7. VITAMIN C [Concomitant]
     Active Substance: ASCORBIC ACID
     Dosage: 500 MG
     Route: 048
  8. ASPIRIN [Concomitant]
     Active Substance: ASPIRIN
     Dosage: 1 DF, 2-3 TIMES DAILY
     Route: 048
  9. TIZANIDINE HYDROCHLORIDE [Concomitant]
     Active Substance: TIZANIDINE HYDROCHLORIDE
     Dosage: 1 DF, Q8H
     Route: 048
  10. OXYCODONE HYDROCHLORIDE [Concomitant]
     Active Substance: OXYCODONE HYDROCHLORIDE
     Indication: Arthralgia
     Dosage: 1 DF, Q6H
     Route: 048
  11. TRAZODONE HCL [Concomitant]
     Active Substance: TRAZODONE HYDROCHLORIDE
     Dosage: 1 DF, BID
     Route: 048
  12. VESICARE [Concomitant]
     Active Substance: SOLIFENACIN SUCCINATE
     Dosage: 1 DF, QD
     Route: 048
  13. DIAZEPAM [Concomitant]
     Active Substance: DIAZEPAM
     Dosage: 1 DF, HS
     Route: 048
  14. LEXAPRO [Concomitant]
     Active Substance: ESCITALOPRAM OXALATE
     Dosage: 1 DF, QD
     Route: 048
  15. AZATHIOPRINE [Concomitant]
     Active Substance: AZATHIOPRINE
     Dosage: 1 DF, QD
     Route: 048
  16. VITAMINS NOS [Concomitant]
     Active Substance: VITAMINS
     Route: 048
  17. GABAPENTIN [Concomitant]
     Active Substance: GABAPENTIN
     Dosage: 300MG TWICE PER DAY
  18. CANNABIS SATIVA SUBSP. INDICA TOP [Concomitant]
     Active Substance: CANNABIS SATIVA SUBSP. INDICA TOP
     Indication: Pain

REACTIONS (48)
  - Progressive multiple sclerosis [Unknown]
  - Gait inability [Unknown]
  - Paraparesis [Unknown]
  - Pain in extremity [Unknown]
  - Muscle spasms [Unknown]
  - Condition aggravated [Unknown]
  - Paraesthesia [Unknown]
  - Asthenia [Unknown]
  - Multiple sclerosis [Unknown]
  - Muscular weakness [Unknown]
  - Visual impairment [Unknown]
  - Tremor [Unknown]
  - Hemiparesis [Unknown]
  - Dysstasia [Unknown]
  - Central nervous system lesion [Unknown]
  - Hypoaesthesia [Unknown]
  - Myalgia [Unknown]
  - Arthralgia [Unknown]
  - Seizure [Unknown]
  - Multiple sclerosis [Unknown]
  - Demyelination [Unknown]
  - Mood altered [Unknown]
  - Irritability [Unknown]
  - Nasal congestion [Unknown]
  - Constipation [Unknown]
  - Memory impairment [Unknown]
  - Migraine [Unknown]
  - Pollakiuria [Unknown]
  - Nervousness [Unknown]
  - Somnolence [Unknown]
  - Anal incontinence [Unknown]
  - Urinary incontinence [Unknown]
  - Diplopia [Unknown]
  - Joint swelling [Unknown]
  - Grip strength decreased [Unknown]
  - Peripheral coldness [Unknown]
  - Anxiety [Unknown]
  - Depression [Unknown]
  - Peripheral swelling [Unknown]
  - Neck pain [Unknown]
  - Back pain [Unknown]
  - Dyspnoea [Unknown]
  - Insomnia [Unknown]
  - Initial insomnia [Unknown]
  - Headache [Unknown]
  - Thyroxine free increased [Unknown]
  - Drug ineffective [Unknown]
  - Pain [Unknown]

NARRATIVE: CASE EVENT DATE: 20151201
